FAERS Safety Report 23959461 (Version 1)
Quarter: 2024Q2

REPORT INFORMATION
  Report Type: Report from Study
  Country: US (occurrence: US)
  Receive Date: 20240611
  Receipt Date: 20240611
  Transmission Date: 20240716
  Serious: Yes (Hospitalization, Other)
  Sender: FDA-Public Use
  Company Number: US-UCBSA-2024019344

PATIENT
  Sex: Male

DRUGS (1)
  1. BIMEKIZUMAB [Suspect]
     Active Substance: BIMEKIZUMAB
     Indication: Psoriasis
     Dosage: 320 MILLIGRAM, EV 4 WEEKS (EVERY 28 DAYS)
     Dates: start: 20240315, end: 20240412

REACTIONS (7)
  - Cellulitis streptococcal [Recovering/Resolving]
  - Hernia repair [Not Recovered/Not Resolved]
  - Necrosis [Recovering/Resolving]
  - Hernia [Not Recovered/Not Resolved]
  - Hypotension [Recovering/Resolving]
  - Heart rate increased [Recovering/Resolving]
  - Scratch [Recovering/Resolving]

NARRATIVE: CASE EVENT DATE: 20240101
